FAERS Safety Report 5603857-1 (Version None)
Quarter: 2008Q1

REPORT INFORMATION
  Report Type: 
  Country: None (occurrence: None)
  Receive Date: 20080122
  Receipt Date: 20080122
  Transmission Date: 20080703
  Serious: No
  Sender: FDA-Public Use
  Company Number: None

PATIENT
  Age: 61 Year
  Sex: Male
  Weight: 82.5547 kg

DRUGS (1)
  1. CREST PRO-HEALTH MOUTH WASH [Suspect]
     Indication: DENTAL DISORDER PROPHYLAXIS
     Dosage: NIGHTLY  PO
     Route: 048
     Dates: start: 20071220, end: 20080118

REACTIONS (1)
  - TOOTH DISCOLOURATION [None]
